FAERS Safety Report 5640730-7 (Version None)
Quarter: 2008Q1

REPORT INFORMATION
  Report Type: 
  Country: None (occurrence: None)
  Receive Date: 20080227
  Receipt Date: 20080124
  Transmission Date: 20080703
  Serious: No
  Sender: FDA-Public Use
  Company Number: US-BAXTER-2008BH000747

PATIENT
  Age: 56 Year
  Sex: Female

DRUGS (10)
  1. HEPARIN SODIUM [Suspect]
     Indication: PROPHYLAXIS
     Route: 033
     Dates: start: 20071231, end: 20071231
  2. ATENOLOL [Concomitant]
     Route: 048
  3. ASPIRIN [Concomitant]
     Route: 048
  4. LIPITOR [Concomitant]
     Route: 048
  5. KLOR-CON [Concomitant]
     Route: 048
  6. ZEMPLAR [Concomitant]
  7. NEPHRON [Concomitant]
     Route: 048
  8. PHOSLO [Concomitant]
     Route: 048
  9. MEGACE [Concomitant]
     Route: 048
  10. LEVOTHYROXINE SODIUM [Concomitant]
     Route: 048

REACTIONS (3)
  - ABDOMINAL PAIN UPPER [None]
  - DIARRHOEA [None]
  - STOMACH DISCOMFORT [None]
